FAERS Safety Report 13719212 (Version 3)
Quarter: 2017Q3

REPORT INFORMATION
  Report Type: Report from Study
  Country: CA (occurrence: CA)
  Receive Date: 20170705
  Receipt Date: 20170728
  Transmission Date: 20171127
  Serious: Yes (Hospitalization)
  Sender: FDA-Public Use
  Company Number: CA-TAKEDA-2017TUS014212

PATIENT
  Age: 87 Year
  Sex: Male

DRUGS (12)
  1. METOPROLOL. [Concomitant]
     Active Substance: METOPROLOL
     Dosage: 12.5 MG, BID
  2. PREDNISONE. [Concomitant]
     Active Substance: PREDNISONE
     Dosage: UNK
  3. BICALUTAMIDE. [Concomitant]
     Active Substance: BICALUTAMIDE
     Dosage: 50 MG, QD
  4. LEUPROLIDE                         /00726901/ [Concomitant]
     Active Substance: LEUPROLIDE
     Dosage: 22.5 MG, Q3MONTHS
  5. NIACIN. [Concomitant]
     Active Substance: NIACIN
     Dosage: 300 MG, QD
  6. VEDOLIZUMAB [Suspect]
     Active Substance: VEDOLIZUMAB
     Indication: COLITIS ULCERATIVE
     Dosage: 300 MG, UNK
     Route: 042
     Dates: start: 20170329
  7. PANTOPRAZOLE [Concomitant]
     Active Substance: PANTOPRAZOLE
     Dosage: 40 MG, BID
  8. TAMSULOSIN [Concomitant]
     Active Substance: TAMSULOSIN
     Dosage: UNK, QD
  9. SALMETEROL/FLUTICASONE CIPLA [Concomitant]
  10. ISONIAZID. [Suspect]
     Active Substance: ISONIAZID
     Indication: TUBERCULOSIS
     Dosage: UNK
     Route: 065
     Dates: start: 201706, end: 201706
  11. AMINOSALICYLIC ACID [Concomitant]
     Active Substance: AMINOSALICYLIC ACID
     Dosage: 1000 MG, BID
  12. PYRIDOXINE [Concomitant]
     Active Substance: PYRIDOXINE
     Dosage: 25 MG, QD

REACTIONS (5)
  - Haemoglobin decreased [Unknown]
  - Latent tuberculosis [Unknown]
  - Blood sodium decreased [Recovered/Resolved with Sequelae]
  - General physical health deterioration [Unknown]
  - Poor venous access [Unknown]

NARRATIVE: CASE EVENT DATE: 201705
